FAERS Safety Report 9100261 (Version 1)
Quarter: 2013Q1

REPORT INFORMATION
  Report Type: Spontaneous
  Country: US (occurrence: US)
  Receive Date: 20130215
  Receipt Date: 20130215
  Transmission Date: 20140127
  Serious: Yes (Other)
  Sender: FDA-Public Use
  Company Number: US-ROXANE LABORATORIES, INC.-2013-RO-00229RO

PATIENT
  Age: 54 Year
  Sex: Female

DRUGS (21)
  1. PREDNISONE [Suspect]
     Indication: IMMUNOSUPPRESSANT DRUG THERAPY
     Dates: start: 201002
  2. PREDNISONE [Suspect]
     Dosage: 25 MG
     Route: 048
     Dates: start: 201102
  3. CYCLOPHOSPHAMIDE TABLETS USP [Suspect]
     Indication: ACUTE LYMPHOCYTIC LEUKAEMIA
  4. METHOTREXATE [Suspect]
     Indication: ACUTE LYMPHOCYTIC LEUKAEMIA
  5. METHOTREXATE [Suspect]
     Indication: PROPHYLAXIS AGAINST GRAFT VERSUS HOST DISEASE
  6. DEXAMETHASONE [Suspect]
     Indication: ACUTE LYMPHOCYTIC LEUKAEMIA
  7. VINCRISTINE [Suspect]
     Indication: ACUTE LYMPHOCYTIC LEUKAEMIA
  8. DOXORUBICIN [Suspect]
     Indication: ACUTE LYMPHOCYTIC LEUKAEMIA
  9. CYTARABINE [Suspect]
     Indication: ACUTE LYMPHOCYTIC LEUKAEMIA
  10. IMATINIB [Suspect]
     Indication: ACUTE LYMPHOCYTIC LEUKAEMIA
  11. IMATINIB [Suspect]
     Dosage: 50 MG
  12. IMATINIB [Suspect]
     Dosage: 100 MG
  13. FLUBARABINE [Suspect]
     Indication: BONE MARROW CONDITIONING REGIMEN
  14. MELPHALAN [Suspect]
     Indication: BONE MARROW CONDITIONING REGIMEN
  15. TACROLIMUS [Suspect]
     Indication: PROPHYLAXIS AGAINST GRAFT VERSUS HOST DISEASE
  16. CELLCEPT [Suspect]
     Indication: GRAFT VERSUS HOST DISEASE
  17. RITUXIMAB [Suspect]
     Indication: GRAFT VERSUS HOST DISEASE
  18. ENTOCORT [Suspect]
     Indication: GRAFT VERSUS HOST DISEASE
  19. RAPAMUNE [Suspect]
     Indication: GRAFT VERSUS HOST DISEASE
  20. CYCLOSPORINE [Suspect]
     Indication: IMMUNOSUPPRESSANT DRUG THERAPY
  21. NILOTINIB [Suspect]
     Indication: ACUTE LYMPHOCYTIC LEUKAEMIA
     Dosage: 800 MG
     Dates: start: 201101

REACTIONS (6)
  - Acute lymphocytic leukaemia recurrent [Recovered/Resolved]
  - Graft versus host disease [Not Recovered/Not Resolved]
  - Thrombocytopenia [Unknown]
  - Drug intolerance [Unknown]
  - Myopathy [Unknown]
  - Renal failure acute [Unknown]
